FAERS Safety Report 7480810-7 (Version None)
Quarter: 2011Q2

REPORT INFORMATION
  Report Type: 
  Country: None (occurrence: None)
  Receive Date: 20110516
  Receipt Date: 20110504
  Transmission Date: 20111010
  Serious: Yes (Death)
  Sender: FDA-Public Use
  Company Number: AU-TYCO HEALTHCARE/MALLINCKRODT-T201100835

PATIENT
  Age: 40 Year
  Sex: Female
  Weight: 120 kg

DRUGS (3)
  1. EXALGO [Suspect]
     Dosage: 72 MG, UNK
     Route: 048
  2. AMITRIPTYLINE HCL [Concomitant]
     Dosage: UNK
  3. SSRI [Concomitant]
     Dosage: UNK

REACTIONS (1)
  - DEATH [None]
